FAERS Safety Report 8049639-5 (Version None)
Quarter: 2012Q1

REPORT INFORMATION
  Report Type: 
  Country: None (occurrence: None)
  Receive Date: 20120117
  Receipt Date: 20120112
  Transmission Date: 20120608
  Serious: Yes (Hospitalization, Congenital Anomaly)
  Sender: FDA-Public Use
  Company Number: US-GLAXOSMITHKLINE-A0765947A

PATIENT
  Sex: Male

DRUGS (3)
  1. VITAMIN TAB [Concomitant]
     Route: 064
  2. PAXIL [Suspect]
     Indication: PRODUCT USED FOR UNKNOWN INDICATION
     Dosage: 10MG UNKNOWN
     Route: 064
     Dates: start: 20060623, end: 20060831
  3. PAXIL CR [Suspect]
     Indication: PRODUCT USED FOR UNKNOWN INDICATION
     Dosage: 12.5MG UNKNOWN
     Route: 064
     Dates: start: 20051128, end: 20060601

REACTIONS (6)
  - VENTRICULAR SEPTAL DEFECT [None]
  - ANKYLOGLOSSIA CONGENITAL [None]
  - FOETAL EXPOSURE DURING PREGNANCY [None]
  - ATRIAL SEPTAL DEFECT [None]
  - AORTICOPULMONARY SEPTAL DEFECT [None]
  - DOUBLE OUTLET RIGHT VENTRICLE [None]
